FAERS Safety Report 6424953-5 (Version None)
Quarter: 2009Q4

REPORT INFORMATION
  Report Type: 
  Country: None (occurrence: None)
  Receive Date: 20091103
  Receipt Date: 20091027
  Transmission Date: 20100525
  Serious: Yes (Hospitalization)
  Sender: FDA-Public Use
  Company Number: US-ELI_LILLY_AND_COMPANY-US200908004073

PATIENT
  Sex: Female

DRUGS (2)
  1. HUMULIN N [Suspect]
     Dosage: 60 U, EACH EVENING
  2. HUMALOG [Suspect]

REACTIONS (4)
  - CYSTITIS [None]
  - KIDNEY INFECTION [None]
  - NEPHROLITHIASIS [None]
  - VISUAL ACUITY REDUCED [None]
